FAERS Safety Report 8083414-0 (Version None)
Quarter: 2012Q1

REPORT INFORMATION
  Report Type: 
  Country: None (occurrence: None)
  Receive Date: 20120127
  Receipt Date: 20110204
  Transmission Date: 20120608
  Serious: No
  Sender: FDA-Public Use
  Company Number: US-ABBOTT-11P-163-0702862-00

PATIENT
  Age: 45 Year
  Sex: Female

DRUGS (5)
  1. VITAMIN D [Concomitant]
     Indication: MINERAL SUPPLEMENTATION
  2. SOLIC ACID [Concomitant]
     Indication: VITAMIN SUPPLEMENTATION
  3. CYCLOBENZAPRINE [Concomitant]
     Indication: PAIN
  4. HUMIRA [Suspect]
     Indication: RHEUMATOID ARTHRITIS
     Dates: start: 20101101, end: 20101201
  5. OMEPRAZOLE [Concomitant]
     Indication: GASTRIC DISORDER

REACTIONS (4)
  - ORAL HERPES [None]
  - COUGH [None]
  - PYREXIA [None]
  - NASAL DISCOMFORT [None]
